FAERS Safety Report 8204227-2 (Version None)
Quarter: 2012Q1

REPORT INFORMATION
  Report Type: 
  Country: None (occurrence: None)
  Receive Date: 20120313
  Receipt Date: 20120307
  Transmission Date: 20120608
  Serious: Yes (Hospitalization)
  Sender: FDA-Public Use
  Company Number: SE-AMGEN-SWESP2012013117

PATIENT
  Age: 58 Year
  Sex: Female

DRUGS (4)
  1. INCIVO [Concomitant]
  2. REBETOL [Concomitant]
  3. NEULASTA [Suspect]
     Indication: CHEMOTHERAPY
     Dosage: UNK
     Dates: start: 20120113
  4. PEGASYS [Concomitant]

REACTIONS (1)
  - BACK PAIN [None]
